FAERS Safety Report 7548528-X (Version None)
Quarter: 2011Q2

REPORT INFORMATION
  Report Type: 
  Country: None (occurrence: None)
  Receive Date: 20110615
  Receipt Date: 20110606
  Transmission Date: 20111010
  Serious: Yes (Other)
  Sender: FDA-Public Use
  Company Number: JP-BAYER-2011-034903

PATIENT
  Age: 79 Year
  Sex: Male
  Weight: 63 kg

DRUGS (10)
  1. ADALAT [Concomitant]
     Indication: BLOOD PRESSURE MANAGEMENT
     Dosage: DAILY DOSE 20 MG
     Route: 048
     Dates: start: 20110217
  2. URSO 250 [Concomitant]
     Dosage: DAILY DOSE 900 MG
     Route: 048
  3. ULCERLMIN [Concomitant]
     Dosage: DAILY DOSE 3 DF
     Route: 048
  4. GLYCYRON [Concomitant]
     Dosage: DAILY DOSE 3 DF
     Route: 048
  5. NEXAVAR [Suspect]
     Indication: HEPATIC NEOPLASM MALIGNANT
     Dosage: 400 MG, BID
     Route: 048
     Dates: start: 20110214, end: 20110303
  6. NEXAVAR [Suspect]
     Dosage: DAILY DOSE 400 MG
     Route: 048
     Dates: start: 20110401
  7. EPIRUBICIN HYDROCHLORIDE [Concomitant]
     Dosage: DAILY DOSE 50 MG
     Route: 013
     Dates: start: 20100113
  8. LIVACT [Concomitant]
     Dosage: DAILY DOSE 3 DF
     Route: 048
  9. EPIRUBICIN HYDROCHLORIDE [Concomitant]
     Dosage: DAILY DOSE 20 MG
     Route: 013
     Dates: start: 20060821
  10. FAMOTIDINE [Concomitant]
     Dosage: DAILY DOSE 40 MG
     Route: 048

REACTIONS (1)
  - LIVER DISORDER [None]
